FAERS Safety Report 13139447 (Version 2)
Quarter: 2017Q2

REPORT INFORMATION
  Report Type: Spontaneous
  Country: US (occurrence: US)
  Receive Date: 20170123
  Receipt Date: 20170417
  Transmission Date: 20170830
  Serious: Yes (Other)
  Sender: FDA-Public Use
  Company Number: US-ELI_LILLY_AND_COMPANY-US201607008789

PATIENT
  Sex: Female
  Weight: 72 kg

DRUGS (2)
  1. CYMBALTA [Suspect]
     Active Substance: DULOXETINE HYDROCHLORIDE
     Indication: DEPRESSION
  2. CYMBALTA [Suspect]
     Active Substance: DULOXETINE HYDROCHLORIDE
     Indication: NEUROPATHY PERIPHERAL
     Dosage: UNK, UNKNOWN
     Route: 048
     Dates: end: 201412

REACTIONS (18)
  - Paraesthesia [Unknown]
  - Insomnia [Unknown]
  - Suicidal ideation [Unknown]
  - Confusional state [Unknown]
  - Fatigue [Unknown]
  - Anxiety [Unknown]
  - Depression [Unknown]
  - Affect lability [Unknown]
  - Nausea [Unknown]
  - Irritability [Unknown]
  - Abdominal pain [Unknown]
  - Dysphoria [Unknown]
  - Anhedonia [Unknown]
  - Agitation [Unknown]
  - Lethargy [Unknown]
  - Headache [Unknown]
  - Drug withdrawal syndrome [Unknown]
  - Migraine [Unknown]
